FAERS Safety Report 10744780 (Version 2)
Quarter: 2015Q2

REPORT INFORMATION
  Report Type: Spontaneous
  Country: US (occurrence: None)
  Receive Date: 20150120
  Receipt Date: 20150420
  Transmission Date: 20150821
  Serious: No
  Sender: FDA-Public Use
  Company Number: AEGR000858

PATIENT
  Age: 68 Year
  Sex: Male
  Weight: 81.6 kg

DRUGS (12)
  1. CRESTOR [Concomitant]
     Active Substance: ROSUVASTATIN CALCIUM
  2. CARVEDILOL. [Concomitant]
     Active Substance: CARVEDILOL
  3. LOVAZA [Concomitant]
     Active Substance: OMEGA-3-ACID ETHYL ESTERS
  4. MULTIPLE VITAMINS (ASCORBIC ACID, ERGOCALCIFEROL, FOLIC ACID, RETINOL, TOCOPHEROL, VITAMIN B NOS) [Concomitant]
  5. JUXTAPID [Suspect]
     Active Substance: LOMITAPIDE MESYLATE
     Indication: TYPE IIA HYPERLIPIDAEMIA
     Route: 048
     Dates: start: 20141013
  6. LIPITOR [Concomitant]
     Active Substance: ATORVASTATIN CALCIUM
  7. WELCHOL (COLESEVELAM HYDROCHLORIDE) [Concomitant]
  8. VITAMIN E (TOCOPHERYL ACETATE) [Concomitant]
  9. ZETIA [Concomitant]
     Active Substance: EZETIMIBE
  10. HMG COA REDUCTASE INHIBITORS (STATINS) [Concomitant]
     Active Substance: UNSPECIFIED INGREDIENT
  11. ASPIRIN (ACETYLSALICYLIC ACID) [Concomitant]
     Active Substance: ASPIRIN
  12. OMEGA 3 6 9 (OMEGA 9 FATTY ACIDS, OMEGA-3 FATTY ACIDS, OMEGA-6 FATTY ACIDS) [Concomitant]

REACTIONS (3)
  - Weight decreased [None]
  - Flatulence [None]
  - Off label use [None]

NARRATIVE: CASE EVENT DATE: 2014
